FAERS Safety Report 4958316-6 (Version None)
Quarter: 2006Q1

REPORT INFORMATION
  Report Type: 
  Country: None (occurrence: None)
  Receive Date: 20060329
  Receipt Date: 20060329
  Transmission Date: 20060701
  Serious: Yes (Hospitalization)
  Sender: FDA-Public Use
  Company Number: None

PATIENT
  Age: 70 Year
  Sex: Female

DRUGS (1)
  1. ISOVUE-300 [Suspect]
     Indication: DIAGNOSTIC PROCEDURE
     Dosage: 140 ML ONCE IV DRIP
     Route: 041
     Dates: start: 20060124, end: 20060124

REACTIONS (4)
  - BLOOD PRESSURE DECREASED [None]
  - DRY MOUTH [None]
  - FEELING ABNORMAL [None]
  - LOSS OF CONSCIOUSNESS [None]
